FAERS Safety Report 7637488-9 (Version None)
Quarter: 2011Q3

REPORT INFORMATION
  Report Type: 
  Country: None (occurrence: None)
  Receive Date: 20110726
  Receipt Date: 20110715
  Transmission Date: 20111222
  Serious: Yes (Other)
  Sender: FDA-Public Use
  Company Number: PHHY2011US64682

PATIENT
  Age: 53 Year
  Sex: Female

DRUGS (5)
  1. SANDOSTATIN LAR [Suspect]
     Dosage: 20 MG, QMO
  2. DIFLUCAN [Concomitant]
  3. ACYCLOVIR [Concomitant]
  4. ADVAIR DISKUS 100/50 [Concomitant]
  5. SANDOSTATIN [Suspect]
     Dosage: 50 UG, TID

REACTIONS (8)
  - FUNGAL INFECTION [None]
  - PAIN [None]
  - FATIGUE [None]
  - SYRINGE ISSUE [None]
  - ABDOMINAL DISTENSION [None]
  - HYPOPHAGIA [None]
  - FEELING ABNORMAL [None]
  - UNDERDOSE [None]
